FAERS Safety Report 24545759 (Version 1)
Quarter: 2024Q4

REPORT INFORMATION
  Report Type: Report from Study
  Country: BR (occurrence: BR)
  Receive Date: 20241024
  Receipt Date: 20241024
  Transmission Date: 20250115
  Serious: Yes (Other)
  Sender: NOVARTIS
  Company Number: BR-002147023-NVSC2024BR198425

PATIENT
  Sex: Female

DRUGS (1)
  1. KISQALI [Suspect]
     Active Substance: RIBOCICLIB
     Indication: Product used for unknown indication
     Dosage: UNK
     Route: 065

REACTIONS (5)
  - Metastases to lung [Unknown]
  - Metastases to breast [Unknown]
  - Metastases to lymph nodes [Unknown]
  - Gene mutation [Not Recovered/Not Resolved]
  - Drug ineffective [Not Recovered/Not Resolved]
